FAERS Safety Report 4322179-2 (Version None)
Quarter: 2004Q1

REPORT INFORMATION
  Report Type: 
  Country: None (occurrence: None)
  Receive Date: 20040319
  Receipt Date: 20040309
  Transmission Date: 20041129
  Serious: Yes (Hospitalization, Other)
  Sender: FDA-Public Use
  Company Number: 2004010869

PATIENT
  Age: 72 Year
  Sex: Female
  Weight: 55.7924 kg

DRUGS (7)
  1. LIPITOR [Suspect]
     Indication: BLOOD CHOLESTEROL INCREASED
     Dosage: 10 MG (DAILY), ORAL
     Route: 048
     Dates: start: 19970101, end: 20020601
  2. ZOLOFT [Suspect]
     Indication: ILL-DEFINED DISORDER
     Dates: start: 20030101
  3. ERYTHROMYCIN [Suspect]
     Indication: CARDIAC DISORDER
  4. ETRAFON [Suspect]
     Indication: DIVERTICULUM
     Dates: start: 19810101, end: 20020701
  5. ANTIBIOTICS [Suspect]
     Indication: HIP ARTHROPLASTY
  6. COLCHICINE (COLCHICINE) [Suspect]
     Indication: C-REACTIVE PROTEIN INCREASED
  7. METOCLOPRAMIDE [Concomitant]

REACTIONS (15)
  - ANXIETY [None]
  - BLOOD BICARBONATE INCREASED [None]
  - BLOOD CHLORIDE DECREASED [None]
  - BLOOD FIBRINOGEN INCREASED [None]
  - BODY HEIGHT DECREASED [None]
  - C-REACTIVE PROTEIN INCREASED [None]
  - CARDIAC DISORDER [None]
  - FEELING ABNORMAL [None]
  - JOINT INJURY [None]
  - MUSCLE RIGIDITY [None]
  - PNEUMONIA [None]
  - POLYMYALGIA RHEUMATICA [None]
  - POST PROCEDURAL COMPLICATION [None]
  - POSTNASAL DRIP [None]
  - UMBILICAL HERNIA [None]
